FAERS Safety Report 11362782 (Version 1)
Quarter: 2015Q3

REPORT INFORMATION
  Report Type: Spontaneous
  Country: AU (occurrence: AU)
  Receive Date: 20150810
  Receipt Date: 20150810
  Transmission Date: 20151125
  Serious: Yes (Hospitalization)
  Sender: FDA-Public Use
  Company Number: AU-BAYER-2015-395640

PATIENT
  Age: 80 Year
  Sex: Female

DRUGS (3)
  1. CALCIUM GLUCONATE [CALCIUM GLUCONATE] [Suspect]
     Active Substance: CALCIUM GLUCONATE
     Indication: TETANY
     Route: 042
  2. CALCIUM CARBONATE. [Suspect]
     Active Substance: CALCIUM CARBONATE
     Indication: TETANY
     Dosage: 3 G, TID
  3. CALCITROL [Suspect]
     Active Substance: CALCITRIOL
     Indication: TETANY
     Dosage: 0.5 ?G, QID

REACTIONS (2)
  - Mental status changes [None]
  - Hypercalcaemia [None]
